FAERS Safety Report 24360927 (Version 1)
Quarter: 2024Q3

REPORT INFORMATION
  Report Type: Spontaneous
  Country: US (occurrence: None)
  Receive Date: 20240924
  Receipt Date: 20240924
  Transmission Date: 20241017
  Serious: Yes (Other)
  Sender: Public
  Company Number: None

PATIENT
  Age: 75 Year
  Sex: Female

DRUGS (2)
  1. BOOSTRIX [Suspect]
     Active Substance: TETANUS TOXOID, REDUCED DIPHTHERIA TOXOID AND ACELLULAR PERTUSSIS VACCINE, ADSORBED ANTIGENS
     Dosage: INTRAMUSCULAR -IM  RIGHT ARM
     Route: 030
  2. TUBERCULIN NOS [Suspect]
     Active Substance: TUBERCULIN PURIFIED PROTEIN DERIVATIVE

REACTIONS (1)
  - Wrong product administered [None]

NARRATIVE: CASE EVENT DATE: 20240904
